FAERS Safety Report 6733652-1 (Version None)
Quarter: 2010Q2

REPORT INFORMATION
  Report Type: 
  Country: None (occurrence: None)
  Receive Date: 20100518
  Receipt Date: 20100503
  Transmission Date: 20101027
  Serious: Yes (Death, Hospitalization)
  Sender: FDA-Public Use
  Company Number: 2009AC000103

PATIENT
  Age: 75 Year
  Sex: Male

DRUGS (28)
  1. DIGOXIN [Suspect]
     Dosage: 0.25 MG;QD;PO
     Route: 048
  2. DIGOXIN [Suspect]
     Dosage: 0.125 MG;PO
     Route: 048
     Dates: start: 20051201, end: 20070207
  3. DIGOXIN [Suspect]
     Dosage: 0.25 MG;QD;PO
     Route: 048
     Dates: start: 20070208, end: 20080401
  4. COUMADIN [Concomitant]
  5. METOPROLOL [Concomitant]
  6. KLOR-CON [Concomitant]
  7. FUROSEMIDE [Concomitant]
  8. ASPIRIN [Concomitant]
  9. LEXAPRO [Concomitant]
  10. HYDROCODONE BITARTRATE AND ACETAMINOPHEN [Concomitant]
  11. COMBIVENT [Concomitant]
  12. OXYGEN [Concomitant]
  13. NITROGLYCERIN [Concomitant]
  14. ROCEPHIN [Concomitant]
  15. ZITHROMAX [Concomitant]
  16. LEVAQUIN [Concomitant]
  17. GENTAMICIN [Concomitant]
  18. BACITRACIN [Concomitant]
  19. SILVADENE [Concomitant]
  20. TYLENOL [Concomitant]
  21. POTASSIUM [Concomitant]
  22. SODIUM CHLORIDE [Concomitant]
  23. TOBRAMYCIN [Concomitant]
  24. ZOSYN [Concomitant]
  25. VANCOMYCIN [Concomitant]
  26. FLAGYL [Concomitant]
  27. TOBRIN [Concomitant]
  28. PROTONIX [Concomitant]

REACTIONS (26)
  - ANAEMIA [None]
  - ASTHENIA [None]
  - BACTERIAL INFECTION [None]
  - BLOOD UREA INCREASED [None]
  - CARDIAC ARREST [None]
  - CARDIAC FAILURE CONGESTIVE [None]
  - CARDIOACTIVE DRUG LEVEL BELOW THERAPEUTIC [None]
  - CHEST PAIN [None]
  - DECUBITUS ULCER [None]
  - ELECTROCARDIOGRAM ST SEGMENT ABNORMAL [None]
  - FLANK PAIN [None]
  - HAEMOPTYSIS [None]
  - HAEMORRHAGE [None]
  - HAEMOTHORAX [None]
  - HYPERHIDROSIS [None]
  - INJURY [None]
  - LUNG NEOPLASM [None]
  - MUSCULOSKELETAL PAIN [None]
  - NAUSEA [None]
  - PNEUMONIA [None]
  - PULMONARY OEDEMA [None]
  - RESPIRATORY ACIDOSIS [None]
  - RESPIRATORY FAILURE [None]
  - SEPSIS [None]
  - SHOCK [None]
  - SINUS BRADYCARDIA [None]
